FAERS Safety Report 18376778 (Version 1)
Quarter: 2020Q4

REPORT INFORMATION
  Report Type: Spontaneous
  Country: US (occurrence: US)
  Receive Date: 20201012
  Receipt Date: 20201012
  Transmission Date: 20210114
  Serious: Yes (Disabling)
  Sender: FDA-Public Use
  Company Number: None

PATIENT
  Age: 71 Year
  Sex: Female
  Weight: 55.5 kg

DRUGS (5)
  1. VANCOMYCIN [Suspect]
     Active Substance: VANCOMYCIN
  2. METOPROLOL. [Concomitant]
     Active Substance: METOPROLOL
  3. ASPIRIN. [Concomitant]
     Active Substance: ASPIRIN
  4. IMDUR [Concomitant]
     Active Substance: ISOSORBIDE MONONITRATE
  5. CEFEPIME [Suspect]
     Active Substance: CEFEPIME HYDROCHLORIDE
     Indication: URINARY TRACT INFECTION
     Dates: start: 20201007, end: 20201009

REACTIONS (5)
  - Agitation [None]
  - Confusional state [None]
  - Haemodialysis [None]
  - Muscle twitching [None]
  - Loss of consciousness [None]

NARRATIVE: CASE EVENT DATE: 20201009
